FAERS Safety Report 8589466-3 (Version None)
Quarter: 2012Q3

REPORT INFORMATION
  Report Type: 
  Country: None (occurrence: None)
  Receive Date: 20120731
  Receipt Date: 20120718
  Transmission Date: 20120928
  Serious: Yes (Other)
  Sender: FDA-Public Use
  Company Number: DSA_56222_2012

PATIENT
  Sex: Male

DRUGS (31)
  1. CHEMOTHERAPEUTICS [Concomitant]
  2. IBUPROFEN [Concomitant]
  3. FLUOCINONIDE [Concomitant]
  4. HYDROCDONE W/APAP [Concomitant]
  5. ELIDEL [Suspect]
     Indication: ECZEMA
     Dosage: DF TOPICAL
     Route: 061
     Dates: start: 20030101
  6. DOXEPIN [Concomitant]
  7. NAPROXEN [Concomitant]
  8. TACROLIMUS [Concomitant]
  9. SERTRALINE HYDROCHLORIDE [Concomitant]
  10. TYLENOL W/ CODEINE NO. 3 [Concomitant]
  11. VINCRISTINE [Concomitant]
  12. TAC [Concomitant]
  13. ALLEGRA [Concomitant]
  14. DOXYCYCLINE HCL [Concomitant]
  15. BENADRYL [Concomitant]
  16. DOXORUBICIN HYDROCHLORIDE [Concomitant]
  17. ETOPOSIDE [Concomitant]
  18. RADIATION THERAPY [Concomitant]
  19. DECADRON PHOSPHATE [Concomitant]
  20. TRIAMCINOLONE [Concomitant]
  21. CLOBETASOL PROPIONATE [Concomitant]
  22. FLONASE [Concomitant]
  23. KYTRIL [Concomitant]
  24. PROTOPIC [Concomitant]
  25. BLEOMYCIN SULFATE [Concomitant]
  26. NITROGEN MUSTARD [Concomitant]
  27. INFLUENZA VACCINE [Concomitant]
  28. RABEPRAZOLE SODIUM [Concomitant]
  29. FEXOFENADINE [Concomitant]
  30. QUINODERM CREAM WITH HYDROCORTISONE [Concomitant]
  31. OLOPATADINE [Concomitant]

REACTIONS (34)
  - HODGKIN'S DISEASE [None]
  - HYPOAESTHESIA [None]
  - SINUS HEADACHE [None]
  - BLOOD GLUCOSE INCREASED [None]
  - DYSPNOEA [None]
  - RASH [None]
  - NEUROPATHY PERIPHERAL [None]
  - NECROSIS [None]
  - JUDGEMENT IMPAIRED [None]
  - FOREIGN BODY IN EYE [None]
  - CHEST PAIN [None]
  - DERMATITIS [None]
  - CONFUSIONAL STATE [None]
  - HYPOTHYROIDISM [None]
  - PSORIASIS [None]
  - FOREARM FRACTURE [None]
  - FATIGUE [None]
  - SOMNOLENCE [None]
  - PRURITUS [None]
  - PAINFUL RESPIRATION [None]
  - WHITE BLOOD CELL COUNT DECREASED [None]
  - WEIGHT DECREASED [None]
  - MUSCULAR WEAKNESS [None]
  - FALL [None]
  - DEPRESSION [None]
  - JOINT DISLOCATION [None]
  - CLAVICLE FRACTURE [None]
  - OESOPHAGITIS [None]
  - LYMPHADENOPATHY [None]
  - CORNEAL ABRASION [None]
  - PARAESTHESIA [None]
  - AMNESIA [None]
  - DISTURBANCE IN ATTENTION [None]
  - MALAISE [None]
